FAERS Safety Report 9277436 (Version 1)
Quarter: 2013Q2

REPORT INFORMATION
  Report Type: Spontaneous
  Country: US (occurrence: None)
  Receive Date: 20130503
  Receipt Date: 20130503
  Transmission Date: 20140414
  Serious: No
  Sender: FDA-Public Use
  Company Number: None

PATIENT
  Age: 61 Year
  Sex: Male

DRUGS (1)
  1. PROPOFOL [Suspect]
     Dosage: 230 MG ONCE IV
     Route: 042
     Dates: start: 20120928, end: 20120928

REACTIONS (2)
  - Hypotension [None]
  - Heart rate irregular [None]
